FAERS Safety Report 6130641-5 (Version None)
Quarter: 2009Q1

REPORT INFORMATION
  Report Type: 
  Country: None (occurrence: None)
  Receive Date: 20090325
  Receipt Date: 20090313
  Transmission Date: 20090719
  Serious: Yes (Hospitalization)
  Sender: FDA-Public Use
  Company Number: GB-TEVA-188197ISR

PATIENT
  Sex: Male
  Weight: 73 kg

DRUGS (8)
  1. FOLINIC ACID [Suspect]
     Indication: COLORECTAL CANCER
     Route: 042
     Dates: start: 20080915
  2. SUNITINIB MALEATE (BLINDED THERAPY) [Suspect]
     Indication: COLORECTAL CANCER
     Route: 048
  3. FLUOROURACIL [Suspect]
     Indication: COLORECTAL CANCER
     Route: 042
     Dates: start: 20080915
  4. IRINOTECAN HCL [Suspect]
     Indication: COLORECTAL CANCER
     Route: 042
     Dates: start: 20080915
  5. ERYTHROMYCIN [Concomitant]
     Dates: start: 20090112, end: 20090119
  6. HYDROCORTISONE [Concomitant]
     Dates: start: 20080624
  7. LOPERAMIDE HYDROCHLORIDE [Concomitant]
     Dates: start: 20080901
  8. CODEINE PHOSPHATE [Concomitant]
     Dates: start: 20080919

REACTIONS (2)
  - PYREXIA [None]
  - SEPSIS [None]
